FAERS Safety Report 6298258-X (Version None)
Quarter: 2009Q3

REPORT INFORMATION
  Report Type: 
  Country: None (occurrence: None)
  Receive Date: 20090805
  Receipt Date: 20090721
  Transmission Date: 20100115
  Serious: Yes (Hospitalization, Disabling)
  Sender: FDA-Public Use
  Company Number: DE-CELGENEUS-062-50794-09070952

PATIENT
  Sex: Male
  Weight: 74 kg

DRUGS (16)
  1. VIDAZA [Suspect]
     Route: 051
     Dates: start: 20080626, end: 20080702
  2. VIDAZA [Suspect]
     Route: 051
     Dates: start: 20080729, end: 20080804
  3. VIDAZA [Suspect]
     Route: 051
     Dates: start: 20080902, end: 20080908
  4. VIDAZA [Suspect]
     Route: 051
     Dates: start: 20080930, end: 20081006
  5. VIDAZA [Suspect]
     Route: 058
     Dates: start: 20090611
  6. VIDAZA [Suspect]
     Route: 058
     Dates: start: 20090708
  7. ACYCLOVIR [Concomitant]
     Indication: ANTIVIRAL PROPHYLAXIS
     Route: 065
  8. PANTOZAL [Concomitant]
     Indication: PROPHYLAXIS
     Route: 065
  9. VFEND [Concomitant]
     Indication: ANTIFUNGAL PROPHYLAXIS
     Route: 065
  10. CIPRO [Concomitant]
     Indication: ANTIBIOTIC PROPHYLAXIS
     Route: 065
  11. CREON [Concomitant]
     Route: 065
  12. CREON [Concomitant]
     Route: 065
  13. LACTULOSE [Concomitant]
     Indication: CONSTIPATION
     Route: 065
     Dates: start: 20090601
  14. METOCLOPRAMIDE [Concomitant]
     Indication: DRUG USE FOR UNKNOWN INDICATION
     Route: 065
     Dates: start: 20090721
  15. FENTANYL [Concomitant]
     Indication: DRUG USE FOR UNKNOWN INDICATION
     Route: 065
     Dates: start: 20090721
  16. CINCHOCAINE [Concomitant]
     Indication: DRUG USE FOR UNKNOWN INDICATION
     Dosage: SUPPOSITORIES
     Route: 065
     Dates: start: 20090721

REACTIONS (1)
  - POLYNEUROPATHY [None]
